FAERS Safety Report 11141523 (Version 1)
Quarter: 2015Q2

REPORT INFORMATION
  Report Type: Report from Study
  Country: BR (occurrence: BR)
  Receive Date: 20150527
  Receipt Date: 20150527
  Transmission Date: 20150821
  Serious: Yes (Hospitalization, Other)
  Sender: FDA-Public Use
  Company Number: BR-ABBVIE-11P-020-0727002-00

PATIENT
  Sex: Female
  Weight: 103 kg

DRUGS (8)
  1. INDOMETHACIN. [Concomitant]
     Active Substance: INDOMETHACIN
     Indication: RHEUMATIC DISORDER
     Route: 048
     Dates: start: 1995
  2. HUMIRA [Suspect]
     Active Substance: ADALIMUMAB
     Indication: ANKYLOSING SPONDYLITIS
     Route: 058
  3. CALCIUM [Concomitant]
     Active Substance: CALCIUM
     Indication: BONE DISORDER
     Route: 048
  4. HUMIRA [Suspect]
     Active Substance: ADALIMUMAB
     Indication: RHEUMATOID ARTHRITIS
     Route: 058
     Dates: start: 20070709, end: 20110525
  5. NORTRIPTYLINE [Concomitant]
     Active Substance: NORTRIPTYLINE
     Indication: RHEUMATIC DISORDER
     Route: 048
     Dates: start: 1995
  6. RANITIDINE [Concomitant]
     Active Substance: RANITIDINE\RANITIDINE HYDROCHLORIDE
     Indication: RHEUMATIC DISORDER
     Route: 048
     Dates: start: 1995
  7. PREDNISONE. [Concomitant]
     Active Substance: PREDNISONE
     Indication: RHEUMATIC DISORDER
     Route: 048
     Dates: start: 1995
  8. METHOTREXATE [Concomitant]
     Active Substance: METHOTREXATE
     Indication: RHEUMATIC DISORDER
     Route: 048

REACTIONS (6)
  - Uterine haemorrhage [Recovered/Resolved]
  - Vaginal haemorrhage [Unknown]
  - Anaemia [Unknown]
  - Abdominal pain [Unknown]
  - Menorrhagia [Unknown]
  - Leiomyoma [Unknown]

NARRATIVE: CASE EVENT DATE: 2009
